FAERS Safety Report 12509650 (Version 1)
Quarter: 2016Q2

REPORT INFORMATION
  Report Type: Report from Study
  Country: US (occurrence: US)
  Receive Date: 20160629
  Receipt Date: 20160629
  Transmission Date: 20160815
  Serious: Yes (Death, Other)
  Sender: FDA-Public Use
  Company Number: US-AMGEN-USASL2015063345

PATIENT
  Age: 64 Year
  Sex: Male
  Weight: 69.84 kg

DRUGS (10)
  1. CARBOPLATIN. [Concomitant]
     Active Substance: CARBOPLATIN
     Dosage: UNK
     Route: 042
     Dates: start: 20150512, end: 20150514
  2. COLACE [Concomitant]
     Active Substance: DOCUSATE SODIUM
     Dosage: 100 MG, UNK
  3. HYDROCODONE [Concomitant]
     Active Substance: HYDROCODONE
     Dosage: 5 MG, UNK
  4. ONDANSETRON HYDROCHLORIDE. [Concomitant]
     Active Substance: ONDANSETRON HYDROCHLORIDE
     Dosage: 8 MG, UNK
  5. PROCHLORPERAZINE MALEATE. [Concomitant]
     Active Substance: PROCHLORPERAZINE MALEATE
     Dosage: 10 MG, UNK
  6. CIPRO [Concomitant]
     Active Substance: CIPROFLOXACIN HYDROCHLORIDE
     Dosage: 500 MG, UNK
  7. PROCRIT [Suspect]
     Active Substance: ERYTHROPOIETIN
     Indication: PRODUCT USED FOR UNKNOWN INDICATION
     Dosage: 40000 UNIT/ML, UNK
     Route: 065
  8. MEGACE [Concomitant]
     Active Substance: MEGESTROL ACETATE
     Dosage: 400 MG/10 ML (40 MG/ML), UNK
  9. ETOPOSIDE. [Concomitant]
     Active Substance: ETOPOSIDE
     Dosage: UNK
     Route: 042
     Dates: start: 20150512, end: 20150514
  10. ACETAMINOPHEN. [Concomitant]
     Active Substance: ACETAMINOPHEN
     Dosage: 325 MG, UNK

REACTIONS (13)
  - Metastases to liver [Unknown]
  - Productive cough [Unknown]
  - Small cell lung cancer metastatic [Not Recovered/Not Resolved]
  - Metastasis [Unknown]
  - Anaemia [Unknown]
  - Dyspnoea [Unknown]
  - Death [Fatal]
  - Fatigue [Unknown]
  - Metastases to adrenals [Unknown]
  - Impaired self-care [Unknown]
  - Asthenia [Unknown]
  - Failure to thrive [Unknown]
  - Pleural effusion [Unknown]

NARRATIVE: CASE EVENT DATE: 20141230
